FAERS Safety Report 21596220 (Version 2)
Quarter: 2023Q1

REPORT INFORMATION
  Report Type: Spontaneous
  Country: GB (occurrence: GB)
  Receive Date: 20221115
  Receipt Date: 20230118
  Transmission Date: 20230418
  Serious: Yes (Death, Hospitalization, Other)
  Sender: FDA-Public Use
  Company Number: GB-BAYER-2022P015726

PATIENT
  Age: 91 Year
  Sex: Male

DRUGS (15)
  1. AFLIBERCEPT [Suspect]
     Active Substance: AFLIBERCEPT
     Indication: Neovascular age-related macular degeneration
     Dosage: 50 ?L, ONCE, RIGHT EYE, PLANNED INTERVAL FOR NEXT INJECTION VISIT-8
     Route: 031
     Dates: start: 20210726, end: 20210726
  2. AFLIBERCEPT [Suspect]
     Active Substance: AFLIBERCEPT
     Dosage: 50 ?L, ONCE, RIGHT EYE, PLANNED INTERVAL FOR NEXT INJECTION VISIT-4
     Route: 031
     Dates: start: 20200604, end: 20200604
  3. AFLIBERCEPT [Suspect]
     Active Substance: AFLIBERCEPT
     Dosage: 50 ?L, ONCE, RIGHT EYE, PLANNED INTERVAL FOR NEXT INJECTION VISIT-4
     Route: 031
     Dates: start: 20200507, end: 20200507
  4. AFLIBERCEPT [Suspect]
     Active Substance: AFLIBERCEPT
     Dosage: 50 ?L, ONCE, RIGHT EYE, PLANNED INTERVAL FOR NEXT INJECTION VISIT-8
     Route: 031
     Dates: start: 20200702, end: 20200702
  5. AFLIBERCEPT [Suspect]
     Active Substance: AFLIBERCEPT
     Dosage: 50 ?L, ONCE, RIGHT EYE, PLANNED INTERVAL FOR NEXT INJECTION VISIT-8
     Route: 031
     Dates: start: 20210920, end: 20210920
  6. AFLIBERCEPT [Suspect]
     Active Substance: AFLIBERCEPT
     Dosage: 50 ?L, ONCE, RIGHT EYE, PLANNED INTERVAL FOR NEXT INJECTION VISIT-8
     Route: 031
     Dates: start: 20200828, end: 20200828
  7. AFLIBERCEPT [Suspect]
     Active Substance: AFLIBERCEPT
     Dosage: 50 UL, 1X
     Route: 031
     Dates: start: 20220525, end: 20220525
  8. AFLIBERCEPT [Suspect]
     Active Substance: AFLIBERCEPT
     Dosage: 50 UL, 1X
     Route: 031
     Dates: start: 20220720, end: 20220720
  9. AFLIBERCEPT [Suspect]
     Active Substance: AFLIBERCEPT
     Dosage: 50 UL, 1X
     Route: 031
     Dates: start: 20211125, end: 20211125
  10. AFLIBERCEPT [Suspect]
     Active Substance: AFLIBERCEPT
     Dosage: 50 UL, 1X
     Route: 031
     Dates: start: 20220308, end: 20220308
  11. AFLIBERCEPT [Suspect]
     Active Substance: AFLIBERCEPT
     Dosage: 50 UL, 1X
     Route: 031
     Dates: start: 20201216, end: 20201216
  12. AFLIBERCEPT [Suspect]
     Active Substance: AFLIBERCEPT
     Dosage: 50 UL, 1X
     Route: 031
     Dates: start: 20210210, end: 20210210
  13. BISOPROLOL [Concomitant]
     Active Substance: BISOPROLOL
     Indication: Coronary artery disease
     Dosage: 2.5 MG, QD
     Dates: start: 20220424
  14. EDOXABAN [Concomitant]
     Active Substance: EDOXABAN
     Indication: Coronary artery disease
     Dosage: 30 MG, QD
     Dates: start: 20220425
  15. ACETAMINOPHEN [Concomitant]
     Active Substance: ACETAMINOPHEN
     Indication: Analgesic therapy
     Dosage: 500 MG, QD
     Dates: start: 20220424

REACTIONS (2)
  - Cardiac arrest [Fatal]
  - Syncope [Recovering/Resolving]

NARRATIVE: CASE EVENT DATE: 20220414
